FAERS Safety Report 9329158 (Version 1)
Quarter: 2013Q2

REPORT INFORMATION
  Report Type: Spontaneous
  Country: US (occurrence: US)
  Receive Date: 20130604
  Receipt Date: 20130604
  Transmission Date: 20140414
  Serious: No
  Sender: FDA-Public Use
  Company Number: US-SANOFI-AVENTIS-2012SA073990

PATIENT
  Age: 61 Year
  Sex: Female

DRUGS (2)
  1. LANTUS OPTICLIK [Suspect]
     Indication: TYPE 2 DIABETES MELLITUS
     Dosage: PRODUCT STARTED: AT THE AGE OF 35
     Route: 058
     Dates: end: 2011
  2. OPTICLICK [Suspect]
     Indication: TYPE 2 DIABETES MELLITUS
     Dates: end: 2011

REACTIONS (2)
  - Weight decreased [Unknown]
  - Glycosylated haemoglobin increased [Unknown]
